FAERS Safety Report 23796026 (Version 1)
Quarter: 2024Q2

REPORT INFORMATION
  Report Type: Report from Study
  Country: US (occurrence: US)
  Receive Date: 20240429
  Receipt Date: 20240429
  Transmission Date: 20240717
  Serious: Yes (Death)
  Sender: FDA-Public Use
  Company Number: US-ABBVIE-5530878

PATIENT
  Sex: Female

DRUGS (5)
  1. SKYRIZI [Suspect]
     Active Substance: RISANKIZUMAB-RZAA
     Indication: Psoriasis
     Dosage: LAST ADMIN DATE: NOV 2023
     Route: 058
     Dates: start: 20231122
  2. SKYRIZI [Suspect]
     Active Substance: RISANKIZUMAB-RZAA
     Route: 058
     Dates: start: 20231124, end: 20231218
  3. SKYRIZI [Suspect]
     Active Substance: RISANKIZUMAB-RZAA
     Dosage: LAST ADMIN DATE: NOV 2023
     Route: 058
     Dates: start: 20231115
  4. HALOBETASOL [Concomitant]
     Active Substance: HALOBETASOL
     Indication: Psoriasis
     Dates: start: 20231218
  5. NITROFURANTOIN [Concomitant]
     Active Substance: NITROFURANTOIN
     Indication: Product used for unknown indication

REACTIONS (14)
  - Pain in extremity [Fatal]
  - Acne [Recovering/Resolving]
  - Psoriasis [Not Recovered/Not Resolved]
  - Groin pain [Unknown]
  - Urinary tract infection [Not Recovered/Not Resolved]
  - Back pain [Unknown]
  - Localised infection [Recovering/Resolving]
  - Ear haemorrhage [Unknown]
  - Sneezing [Unknown]
  - Rhinorrhoea [Unknown]
  - Skin weeping [Not Recovered/Not Resolved]
  - Swelling [Recovering/Resolving]
  - Vaginal infection [Recovering/Resolving]
  - Lip infection [Recovering/Resolving]

NARRATIVE: CASE EVENT DATE: 20230101
